FAERS Safety Report 8990616 (Version 3)
Quarter: 2013Q2

REPORT INFORMATION
  Report Type: Report from Study
  Country: JP (occurrence: JP)
  Receive Date: 20121030
  Receipt Date: 20130625
  Transmission Date: 20140414
  Serious: Yes (Hospitalization, Other)
  Sender: FDA-Public Use
  Company Number: JP-009507513-2012SP035714

PATIENT
  Age: 61 Year
  Sex: Male
  Weight: 73 kg

DRUGS (17)
  1. PEGINTRON [Suspect]
     Indication: CHRONIC HEPATITIS C
     Dosage: 1.5 MICROGRAM PER KILOGRAM, QW
     Route: 058
     Dates: start: 20120605, end: 20120731
  2. REBETOL [Suspect]
     Indication: CHRONIC HEPATITIS C
     Dosage: 800 MG, QD
     Route: 048
     Dates: start: 20120605, end: 20120621
  3. REBETOL [Suspect]
     Dosage: 800 MG, QD
     Route: 048
     Dates: start: 20120623, end: 20120803
  4. TELAVIC [Suspect]
     Indication: CHRONIC HEPATITIS C
     Dosage: 2250 MG, QD
     Route: 048
     Dates: start: 20120605, end: 20120621
  5. TELAVIC [Suspect]
     Dosage: 1500 MG, QD
     Dates: start: 20120618, end: 20120622
  6. TELAVIC [Suspect]
     Dosage: 1500 MG, QD
     Dates: start: 20120724, end: 20120726
  7. TELAVIC [Suspect]
     Dosage: 1000 MG, QD
     Dates: start: 20120727, end: 20120803
  8. DEPAS [Concomitant]
     Indication: INSOMNIA
     Dosage: 2 MG, QD
     Route: 048
  9. ZYLORIC [Concomitant]
     Indication: HYPERURICAEMIA
     Dosage: 100 MG, QD, FORMULATION: POR
     Route: 048
  10. SILECE [Concomitant]
     Indication: INSOMNIA
     Dosage: 2 MG, QD, FORMULATION: POR
     Route: 048
  11. AMOBAN [Concomitant]
     Indication: INSOMNIA
     Dosage: 7.5 MG, QD, FORMULATION: POR
     Route: 048
  12. TALION (BEPOTASTINE BESYLATE) [Concomitant]
     Indication: PROPHYLAXIS
     Dosage: 20 MG, QD
     Route: 048
     Dates: start: 20120605, end: 20120621
  13. GASTER D [Concomitant]
     Indication: PROPHYLAXIS
     Dosage: 40 MG, QD, FORMULATION: POR
     Route: 048
     Dates: start: 20120605, end: 20120621
  14. OMEPRAL [Concomitant]
     Indication: PROPHYLAXIS
     Dosage: 20 MG, QD, FORMULATION: POR
     Route: 048
     Dates: start: 20120623, end: 20120731
  15. ECARD HD [Concomitant]
     Indication: HYPERTENSION
     Dosage: DAILY DOSE UNKNOWN,  FORMULATION: POR
     Route: 048
     Dates: start: 20121120
  16. ADALAT CR [Concomitant]
     Indication: HYPERTENSION
     Dosage: 20 MG, QD, FORMULATION: POR
     Route: 048
     Dates: start: 20121127
  17. AMLODIPINE BESYLATE [Concomitant]
     Indication: HYPERTENSION
     Dosage: 5 MG, QD, FORMULATION: POR
     Route: 048

REACTIONS (5)
  - Pancreatitis acute [Unknown]
  - Blood creatinine increased [Recovering/Resolving]
  - Pancreatitis acute [Recovered/Resolved]
  - Pancreatitis [Unknown]
  - Pyrexia [Unknown]
